APPROVED DRUG PRODUCT: IVY BLOCK
Active Ingredient: BENTOQUATAM
Strength: 5%
Dosage Form/Route: LOTION;TOPICAL
Application: N020532 | Product #001
Applicant: STANDARD HOMEOPATHIC CO
Approved: Aug 26, 1996 | RLD: Yes | RS: Yes | Type: OTC